FAERS Safety Report 10677808 (Version 1)
Quarter: 2014Q4

REPORT INFORMATION
  Report Type: Spontaneous
  Country: TN (occurrence: None)
  Receive Date: 20141223
  Receipt Date: 20141223
  Transmission Date: 20150529
  Serious: Yes (Death, Hospitalization)
  Sender: FDA-Public Use
  Company Number: TN-2014-1598

PATIENT
  Age: 77 Year
  Sex: Male
  Weight: 82 kg

DRUGS (3)
  1. CARBOPLATIN (CARBOPLATIN) [Suspect]
     Active Substance: CARBOPLATIN
     Indication: PRODUCT USED FOR UNKNOWN INDICATION
     Dosage: 450 MG, CYCLICAL (1?21), (1888 MG PER CYCLE)
     Dates: start: 20140318
  2. CISPLATIN (CISPLATIN) [Suspect]
     Active Substance: CISPLATIN
     Dosage: 188 MG PER CYCLE, 4 CYCLES ; UNKNOWN
     Dates: start: 20140202, end: 20140304
  3. NAVELBINE [Suspect]
     Active Substance: VINORELBINE TARTRATE
     Indication: PRODUCT USED FOR UNKNOWN INDICATION
     Dosage: 48 MG, DAYS 1 AND 8, CYCLICAL (1/21). TOTAL DOSE 90 MG
     Route: 042
     Dates: start: 20140203, end: 20140401

REACTIONS (3)
  - Febrile bone marrow aplasia [None]
  - Epistaxis [None]
  - Neuralgia [None]

NARRATIVE: CASE EVENT DATE: 20140408
